FAERS Safety Report 5040734-1 (Version None)
Quarter: 2006Q3

REPORT INFORMATION
  Report Type: 
  Country: None (occurrence: None)
  Receive Date: 20060703
  Receipt Date: 20060530
  Transmission Date: 20061208
  Serious: Yes (Other)
  Sender: FDA-Public Use
  Company Number: PHHO2006JP08771

PATIENT
  Age: 68 Year
  Sex: Male

DRUGS (3)
  1. DECADRON [Concomitant]
     Indication: PROSTATE CANCER
     Route: 048
     Dates: start: 20051001
  2. HYPEN [Concomitant]
     Route: 048
     Dates: start: 20050101
  3. ZOMETA [Suspect]
     Indication: METASTASES TO BONE
     Dosage: 4 MG MONTHLY
     Route: 042
     Dates: start: 20051227

REACTIONS (3)
  - HYPOAESTHESIA [None]
  - METASTASES TO BONE [None]
  - OSTEOMYELITIS [None]
